FAERS Safety Report 6872229-4 (Version None)
Quarter: 2010Q3

REPORT INFORMATION
  Report Type: 
  Country: None (occurrence: None)
  Receive Date: 20100723
  Receipt Date: 20100719
  Transmission Date: 20110219
  Serious: Yes (Disabling, Other)
  Sender: FDA-Public Use
  Company Number: GB-TEVA-242082ISR

PATIENT
  Age: 7 Decade
  Sex: Male
  Weight: 69.9 kg

DRUGS (1)
  1. SIMVASTATIN [Suspect]
     Indication: BLOOD CHOLESTEROL INCREASED
     Route: 048
     Dates: start: 20080101, end: 20100629

REACTIONS (2)
  - ASTHENIA [None]
  - MUSCLE ATROPHY [None]
